FAERS Safety Report 23110284 (Version 1)
Quarter: 2023Q4

REPORT INFORMATION
  Report Type: Spontaneous
  Country: US (occurrence: None)
  Receive Date: 20231024
  Receipt Date: 20231024
  Transmission Date: 20240110
  Serious: Yes (Hospitalization)
  Sender: FDA-Public Use
  Company Number: None

PATIENT
  Age: 85 Year
  Sex: Male
  Weight: 60.50 kg

DRUGS (4)
  1. MIRCERA [Suspect]
     Active Substance: METHOXY POLYETHYLENE GLYCOL-EPOETIN BETA
     Indication: Anaemia
     Dosage: OTHER FREQUENCY : FIRST DOSE;?
     Route: 042
     Dates: start: 20231020
  2. VENOFER [Concomitant]
     Active Substance: IRON SUCROSE
  3. ONDANSETRON [Concomitant]
     Active Substance: ONDANSETRON
  4. DIPHENHYDRAMINE [Concomitant]
     Active Substance: DIPHENHYDRAMINE

REACTIONS (4)
  - Pruritus [None]
  - Dyspnoea [None]
  - Dialysis [None]
  - Confusional state [None]

NARRATIVE: CASE EVENT DATE: 20231020
